FAERS Safety Report 10463048 (Version 2)
Quarter: 2016Q3

REPORT INFORMATION
  Report Type: Report from Study
  Country: US (occurrence: US)
  Receive Date: 20140919
  Receipt Date: 20160929
  Transmission Date: 20161109
  Serious: Yes (Death, Hospitalization, Other)
  Sender: FDA-Public Use
  Company Number: US-ROCHE-1459853

PATIENT

DRUGS (13)
  1. CONSENSUS INTERFERON [Suspect]
     Active Substance: INTERFERON ALFACON-1
     Indication: HEPATITIS C
     Route: 065
  2. PEGINTERFERON ALFA-2B [Suspect]
     Active Substance: PEGINTERFERON ALFA-2B
     Indication: HEPATITIS C
     Route: 065
  3. TELAPREVIR [Suspect]
     Active Substance: TELAPREVIR
     Indication: HEPATITIS C
     Route: 065
  4. TELAPREVIR [Suspect]
     Active Substance: TELAPREVIR
     Route: 065
  5. CYCLOSPORINE. [Suspect]
     Active Substance: CYCLOSPORINE
     Indication: RENAL TRANSPLANT
  6. TACROLIMUS. [Suspect]
     Active Substance: TACROLIMUS
     Indication: RENAL TRANSPLANT
     Route: 065
  7. TACROLIMUS. [Suspect]
     Active Substance: TACROLIMUS
     Indication: LIVER TRANSPLANT
  8. RIBAVIRIN. [Suspect]
     Active Substance: RIBAVIRIN
     Indication: HEPATITIS C
     Route: 065
  9. CYCLOSPORINE. [Suspect]
     Active Substance: CYCLOSPORINE
     Indication: LIVER TRANSPLANT
     Route: 065
  10. MYCOPHENOLATE MOFETIL. [Suspect]
     Active Substance: MYCOPHENOLATE MOFETIL
     Indication: LIVER TRANSPLANT
     Route: 065
  11. MYCOPHENOLATE MOFETIL. [Suspect]
     Active Substance: MYCOPHENOLATE MOFETIL
     Indication: RENAL TRANSPLANT
  12. BOCEPREVIR [Suspect]
     Active Substance: BOCEPREVIR
     Indication: HEPATITIS C
     Route: 065
  13. PEG-INTERFERON ALFA 2A [Suspect]
     Active Substance: PEGINTERFERON ALFA-2A
     Indication: HEPATITIS C
     Route: 065

REACTIONS (12)
  - Hepatic failure [Fatal]
  - Rash [Unknown]
  - Infection [Unknown]
  - Renal failure [Unknown]
  - Bacteraemia [Unknown]
  - Transplant rejection [Fatal]
  - Acute kidney injury [Fatal]
  - Leukopenia [Unknown]
  - Thrombocytopenia [Unknown]
  - Hepatic cirrhosis [Unknown]
  - Ascites [Fatal]
  - Anaemia [Unknown]
